FAERS Safety Report 8571994-8 (Version None)
Quarter: 2012Q3

REPORT INFORMATION
  Report Type: 
  Country: None (occurrence: None)
  Receive Date: 20120806
  Receipt Date: 20120723
  Transmission Date: 20120928
  Serious: Yes (Other)
  Sender: FDA-Public Use
  Company Number: IT-MYLANLABS-2012S1015151

PATIENT
  Age: 25 Year
  Sex: Female

DRUGS (1)
  1. ALPRAZOLAM [Suspect]
     Indication: ANTIDEPRESSANT THERAPY
     Dates: start: 20120101, end: 20120713

REACTIONS (1)
  - TOXICITY TO VARIOUS AGENTS [None]
